FAERS Safety Report 7809581-9 (Version None)
Quarter: 2011Q4

REPORT INFORMATION
  Report Type: 
  Country: None (occurrence: None)
  Receive Date: 20111007
  Receipt Date: 20110926
  Transmission Date: 20120403
  Serious: Yes (Other)
  Sender: FDA-Public Use
  Company Number: 2011SP045412

PATIENT
  Age: 66 Year
  Sex: Male

DRUGS (2)
  1. SPIRONOLACTONE [Concomitant]
  2. PEG-INTRON [Suspect]
     Indication: MALIGNANT MELANOMA
     Dosage: SC
     Route: 058
     Dates: start: 20050301, end: 20060101

REACTIONS (1)
  - PARKINSON'S DISEASE [None]
